FAERS Safety Report 10046970 (Version 1)
Quarter: 2014Q1

REPORT INFORMATION
  Report Type: Spontaneous
  Country: US (occurrence: None)
  Receive Date: 20140328
  Receipt Date: 20140328
  Transmission Date: 20141002
  Serious: Yes (Other)
  Sender: FDA-Public Use
  Company Number: None

PATIENT
  Sex: Male
  Weight: 154.22 kg

DRUGS (1)
  1. METOPROLOL [Suspect]
     Dosage: 1/2 QAM  1QPM, PO
     Route: 048

REACTIONS (3)
  - Atrial flutter [None]
  - Atrial fibrillation [None]
  - Product substitution issue [None]
